FAERS Safety Report 6107881-4 (Version None)
Quarter: 2009Q1

REPORT INFORMATION
  Report Type: 
  Country: None (occurrence: None)
  Receive Date: 20090305
  Receipt Date: 20090305
  Transmission Date: 20090719
  Serious: Yes (Death)
  Sender: FDA-Public Use
  Company Number: None

PATIENT
  Age: 59 Year
  Sex: Female
  Weight: 60.3284 kg

DRUGS (1)
  1. SORAFENIB 200 MG ONYX/ BAYER [Suspect]
     Indication: PULMONARY ARTERIAL HYPERTENSION
     Dosage: 200 MG TID PO
     Route: 048
     Dates: start: 20070425, end: 20090227

REACTIONS (6)
  - CARDIO-RESPIRATORY ARREST [None]
  - CATHETER RELATED INFECTION [None]
  - FALL [None]
  - GASTROINTESTINAL HAEMORRHAGE [None]
  - HYPOTENSION [None]
  - RENAL FAILURE ACUTE [None]
